FAERS Safety Report 6880295-5 (Version None)
Quarter: 2010Q3

REPORT INFORMATION
  Report Type: 
  Country: None (occurrence: None)
  Receive Date: 20100728
  Receipt Date: 20100719
  Transmission Date: 20110219
  Serious: Yes (Life-Threatening, Hospitalization)
  Sender: FDA-Public Use
  Company Number: NL-TEVA-241911ISR

PATIENT
  Age: 75 Year
  Sex: Male

DRUGS (9)
  1. SOTALOL HCL [Suspect]
  2. ISOSORBIDE MONONITRATE [Interacting]
  3. ACENOCOUMAROL [Suspect]
  4. ATORVASTATIN [Suspect]
  5. PERINDOPRIL [Suspect]
  6. FUROSEMIDE [Suspect]
  7. AMLODIPINE [Suspect]
  8. AMIODARONE HCL [Interacting]
  9. DIGOXIN [Interacting]

REACTIONS (4)
  - CARDIOGENIC SHOCK [None]
  - DRUG INTERACTION [None]
  - OVERDOSE [None]
  - RENAL FAILURE [None]
